FAERS Safety Report 18379138 (Version 1)
Quarter: 2020Q4

REPORT INFORMATION
  Report Type: Spontaneous
  Country: LB (occurrence: LB)
  Receive Date: 20201013
  Receipt Date: 20201013
  Transmission Date: 20210114
  Serious: Yes (Death, Other)
  Sender: FDA-Public Use
  Company Number: PK-ELI_LILLY_AND_COMPANY-LB202010002290

PATIENT
  Age: 55 Year
  Sex: Male

DRUGS (2)
  1. TAXOL [Concomitant]
     Active Substance: PACLITAXEL
     Indication: GASTRIC CANCER
     Dosage: UNK, UNKNOWN
     Route: 065
  2. CYRAMZA [Suspect]
     Active Substance: RAMUCIRUMAB
     Indication: METASTATIC GASTRIC CANCER
     Dosage: UNK, UNKNOWN
     Route: 065
     Dates: start: 201712

REACTIONS (4)
  - Malignant neoplasm progression [Unknown]
  - Malnutrition [Unknown]
  - Death [Fatal]
  - Hypophagia [Unknown]

NARRATIVE: CASE EVENT DATE: 201808
